FAERS Safety Report 9907067 (Version 2)
Quarter: 2014Q1

REPORT INFORMATION
  Report Type: Spontaneous
  Country: US (occurrence: US)
  Receive Date: 20140218
  Receipt Date: 20140218
  Transmission Date: 20141002
  Serious: No
  Sender: FDA-Public Use
  Company Number: US-PFIZER INC-2013316606

PATIENT
  Sex: Female

DRUGS (9)
  1. CHANTIX [Suspect]
     Dosage: UNK (STARTER PACK)
     Route: 048
  2. CHANTIX [Suspect]
     Dosage: 1 MG, TWICE A DAY WITH FOOD
     Route: 048
  3. LISINOPRIL W/HYDROCHLOROTHIAZIDE [Concomitant]
     Dosage: LISINOPRIL 20 MG/HYDROCHLOROTHIAZIDE 12.5 MG
  4. PLAVIX [Concomitant]
     Dosage: 75 MG, DAILY
  5. CYMBALTA [Concomitant]
     Dosage: 60 MG, DAILY
  6. IBUPROFEN [Concomitant]
     Dosage: 400 MG, AS NEEDED
  7. FLEXERIL [Concomitant]
     Dosage: 10 MG, AS NEEDED
  8. VITAMIN D3 [Concomitant]
     Dosage: 50000 IU, 2X/WEEK
  9. ULTRAM [Concomitant]
     Dosage: 50 MG, CYCLIC

REACTIONS (1)
  - Feeling abnormal [Unknown]
